FAERS Safety Report 9943530 (Version 1)
Quarter: 2014Q1

REPORT INFORMATION
  Report Type: Report from Study
  Country: US (occurrence: US)
  Receive Date: 20140303
  Receipt Date: 20140303
  Transmission Date: 20141002
  Serious: No
  Sender: FDA-Public Use
  Company Number: US-ABBVIE-13P-163-1047492-00

PATIENT
  Age: 43 Year
  Sex: Female
  Weight: 47.22 kg

DRUGS (8)
  1. HUMIRA [Suspect]
     Indication: RHEUMATOID ARTHRITIS
     Dates: start: 201208, end: 201211
  2. METHOTREXATE [Concomitant]
     Indication: RHEUMATOID ARTHRITIS
  3. SYNTHROID [Concomitant]
     Indication: HYPOTHYROIDISM
  4. FOLIC ACID [Concomitant]
     Indication: PRODUCT USED FOR UNKNOWN INDICATION
  5. IBUPROFEN [Concomitant]
     Indication: PAIN
  6. IBUPROFEN [Concomitant]
     Indication: SWELLING
  7. TYLENOL [Concomitant]
     Indication: PAIN
  8. TYLENOL [Concomitant]
     Indication: SWELLING

REACTIONS (2)
  - Tooth infection [Recovered/Resolved]
  - Gastroenteritis viral [Recovered/Resolved]
